FAERS Safety Report 6016284-2 (Version None)
Quarter: 2008Q4

REPORT INFORMATION
  Report Type: 
  Country: None (occurrence: None)
  Receive Date: 20081218
  Receipt Date: 20081202
  Transmission Date: 20090506
  Serious: Yes (Hospitalization, Other)
  Sender: FDA-Public Use
  Company Number: KV200800823

PATIENT
  Age: 54 Year
  Sex: Male

DRUGS (4)
  1. PROPAFENONE HYDROCHLORIDE [Suspect]
     Indication: ATRIAL FIBRILLATION
     Dosage: 150 MG, TID, ORAL
     Route: 048
     Dates: start: 20080827, end: 20081007
  2. SYNTHROID [Concomitant]
  3. SEVERAL BLOOD PRESSURE MEDICATIONS [Concomitant]
  4. SOTALOL HCL [Concomitant]

REACTIONS (6)
  - CHEST PAIN [None]
  - DIZZINESS [None]
  - DYSPNOEA [None]
  - HYPOTENSION [None]
  - NAUSEA [None]
  - PRODUCT QUALITY ISSUE [None]
